FAERS Safety Report 25961520 (Version 1)
Quarter: 2025Q4

REPORT INFORMATION
  Report Type: Spontaneous
  Country: US (occurrence: US)
  Receive Date: 20251027
  Receipt Date: 20251027
  Transmission Date: 20260117
  Serious: Yes (Life-Threatening, Hospitalization, Other)
  Sender: Steriscience PTE
  Company Number: US-STERISCIENCE B.V.-2025-ST-001581

PATIENT
  Age: 11 Year
  Sex: Male

DRUGS (6)
  1. ROCURONIUM BROMIDE [Interacting]
     Active Substance: ROCURONIUM BROMIDE
     Indication: Induction of anaesthesia
     Dosage: UNK
     Route: 042
  2. GABAPENTIN [Interacting]
     Active Substance: GABAPENTIN
     Indication: Seizure
     Dosage: UNK
     Route: 065
  3. FENTANYL [Interacting]
     Active Substance: FENTANYL
     Indication: Induction of anaesthesia
     Dosage: UNK
     Route: 042
  4. KETAMINE [Interacting]
     Active Substance: KETAMINE
     Indication: Induction of anaesthesia
     Dosage: UNK
     Route: 042
  5. PROPOFOL [Interacting]
     Active Substance: PROPOFOL
     Indication: Induction of anaesthesia
     Dosage: UNK
     Route: 042
  6. SEVOFLURANE [Interacting]
     Active Substance: SEVOFLURANE
     Indication: Induction of anaesthesia
     Dosage: UNK

REACTIONS (3)
  - Cardiac arrest [None]
  - Drug interaction [None]
  - Toxicity to various agents [None]
